FAERS Safety Report 10340288 (Version 2)
Quarter: 2014Q3

REPORT INFORMATION
  Report Type: Spontaneous
  Country: GB (occurrence: GB)
  Receive Date: 20140724
  Receipt Date: 20140731
  Transmission Date: 20150326
  Serious: Yes (Other)
  Sender: FDA-Public Use
  Company Number: GB-ASTRAZENECA-2014SE53231

PATIENT
  Age: 82 Year
  Sex: Female

DRUGS (1)
  1. LISINOPRIL. [Suspect]
     Active Substance: LISINOPRIL
     Indication: HYPERTENSION
     Route: 048
     Dates: start: 201407, end: 201407

REACTIONS (3)
  - Rash [Unknown]
  - Skin reaction [Unknown]
  - Blister [Unknown]

NARRATIVE: CASE EVENT DATE: 201407
